FAERS Safety Report 24464346 (Version 1)
Quarter: 2024Q4

REPORT INFORMATION
  Report Type: Report from Study
  Country: US (occurrence: US)
  Receive Date: 20241018
  Receipt Date: 20241018
  Transmission Date: 20250114
  Serious: No
  Sender: ROCHE
  Company Number: US-ROCHE-3504157

PATIENT
  Age: 38 Year
  Sex: Female

DRUGS (19)
  1. XOLAIR [Suspect]
     Active Substance: OMALIZUMAB
     Indication: Idiopathic urticaria
     Dosage: 30 DAYS SUPPLY
     Route: 058
     Dates: start: 20231004
  2. XOLAIR [Suspect]
     Active Substance: OMALIZUMAB
  3. SINGULAIR [Concomitant]
     Active Substance: MONTELUKAST SODIUM
  4. ZESTRIL [Concomitant]
     Active Substance: LISINOPRIL
  5. PRINIVIL [Concomitant]
     Active Substance: LISINOPRIL
  6. LEVONORGESTREL [Concomitant]
     Active Substance: LEVONORGESTREL
  7. LEVOCETIRIZINE DIHYDROCHLORIDE [Concomitant]
     Active Substance: LEVOCETIRIZINE DIHYDROCHLORIDE
  8. HYDROCHLOROTHIAZIDE [Concomitant]
     Active Substance: HYDROCHLOROTHIAZIDE
  9. ORETIC [Concomitant]
     Active Substance: HYDROCHLOROTHIAZIDE
  10. FLOVENT [Concomitant]
     Active Substance: FLUTICASONE PROPIONATE
  11. ALLEGRA [Concomitant]
     Active Substance: FEXOFENADINE HYDROCHLORIDE
  12. NEXIUM [Concomitant]
     Active Substance: ESOMEPRAZOLE MAGNESIUM
  13. EPINEPHRINE [Concomitant]
     Active Substance: EPINEPHRINE
  14. ASTELIN [Concomitant]
     Active Substance: AZELASTINE HYDROCHLORIDE
  15. VENTOLIN [Concomitant]
     Active Substance: ALBUTEROL SULFATE
  16. PROVENTIL [Concomitant]
     Active Substance: ALBUTEROL
  17. RHINOCORT (UNITED STATES) [Concomitant]
  18. ATROVENT [Concomitant]
     Active Substance: IPRATROPIUM BROMIDE
  19. SYMBICORT [Concomitant]
     Active Substance: BUDESONIDE\FORMOTEROL FUMARATE DIHYDRATE

REACTIONS (2)
  - Urticaria [Unknown]
  - Off label use [Unknown]
